FAERS Safety Report 11416998 (Version 2)
Quarter: 2015Q3

REPORT INFORMATION
  Report Type: Spontaneous
  Country: US (occurrence: US)
  Receive Date: 20150825
  Receipt Date: 20150831
  Transmission Date: 20151125
  Serious: Yes (Other)
  Sender: FDA-Public Use
  Company Number: US-ELI_LILLY_AND_COMPANY-US201508006892

PATIENT
  Sex: Female

DRUGS (5)
  1. INSULIN HUMAN [Suspect]
     Active Substance: INSULIN HUMAN
     Indication: PRODUCT USED FOR UNKNOWN INDICATION
     Route: 065
  2. HUMALOG [Suspect]
     Active Substance: INSULIN LISPRO
     Indication: PRODUCT USED FOR UNKNOWN INDICATION
     Route: 065
  3. LASIX [Concomitant]
     Active Substance: FUROSEMIDE
  4. HUMULIN N [Suspect]
     Active Substance: INSULIN HUMAN
     Indication: PRODUCT USED FOR UNKNOWN INDICATION
     Route: 065
  5. LANTUS [Concomitant]
     Active Substance: INSULIN GLARGINE

REACTIONS (8)
  - Skin discolouration [Unknown]
  - Asthenia [Unknown]
  - Diarrhoea [Unknown]
  - Night sweats [Unknown]
  - Blood glucose decreased [Unknown]
  - Loss of consciousness [Unknown]
  - Weight increased [Unknown]
  - Oedema peripheral [Unknown]
